FAERS Safety Report 19668107 (Version 2)
Quarter: 2021Q3

REPORT INFORMATION
  Report Type: Spontaneous
  Country: JP (occurrence: JP)
  Receive Date: 20210806
  Receipt Date: 20210818
  Transmission Date: 20211014
  Serious: No
  Sender: FDA-Public Use
  Company Number: JP-UCBSA-2021037293

PATIENT
  Age: 99 Year
  Sex: Female

DRUGS (4)
  1. FUROSEMIDE. [Suspect]
     Active Substance: FUROSEMIDE
     Indication: PRODUCT USED FOR UNKNOWN INDICATION
     Dosage: 10MG PER DAY
     Route: 048
  2. E KEPPRA [Suspect]
     Active Substance: LEVETIRACETAM
     Indication: EPILEPSY
     Dosage: 500 MILLIGRAM, 2X/DAY (BID)
     Route: 048
     Dates: start: 20210326
  3. CITRIC ACID [Suspect]
     Active Substance: CITRIC ACID MONOHYDRATE
     Indication: PRODUCT USED FOR UNKNOWN INDICATION
     Dosage: 100 MILLIGRAM, 2X/DAY (BID)
     Route: 048
  4. SEPAZON [Suspect]
     Active Substance: CLOXAZOLAM
     Indication: PRODUCT USED FOR UNKNOWN INDICATION
     Dosage: 1MG PER DAY
     Route: 048

REACTIONS (2)
  - Lip swelling [Recovering/Resolving]
  - Swollen tongue [Recovering/Resolving]
